FAERS Safety Report 7458447-5 (Version None)
Quarter: 2011Q2

REPORT INFORMATION
  Report Type: 
  Country: None (occurrence: None)
  Receive Date: 20110504
  Receipt Date: 20110426
  Transmission Date: 20111010
  Serious: Yes (Other)
  Sender: FDA-Public Use
  Company Number: B0716078A

PATIENT
  Sex: Female
  Weight: 14.9 kg

DRUGS (9)
  1. TACROLIMUS HYDRATE [Concomitant]
     Indication: IMMUNOSUPPRESSION
     Dosage: .22MG PER DAY
     Route: 065
     Dates: start: 20080707, end: 20080813
  2. METHOTREXATE [Concomitant]
     Indication: IMMUNOSUPPRESSION
     Dosage: 10MG PER DAY
     Route: 065
     Dates: start: 20080708, end: 20080718
  3. VICCLOX [Concomitant]
     Dosage: 225MG PER DAY
     Route: 042
     Dates: start: 20080704, end: 20080908
  4. VEPESID [Suspect]
     Indication: ALLOGENIC BONE MARROW TRANSPLANTATION THERAPY
     Dosage: 60MGK PER DAY
     Route: 042
     Dates: start: 20080703, end: 20080703
  5. URSO 250 [Concomitant]
     Dosage: 150MG PER DAY
     Route: 048
     Dates: end: 20080709
  6. FUNGUARD [Concomitant]
     Dosage: 90MG PER DAY
     Route: 042
     Dates: start: 20080704, end: 20080911
  7. KEITEN [Concomitant]
     Dosage: 3000MG PER DAY
     Route: 042
     Dates: start: 20080704, end: 20080710
  8. ALKERAN [Suspect]
     Indication: ALLOGENIC BONE MARROW TRANSPLANTATION THERAPY
     Dosage: 90MGM2 PER DAY
     Route: 042
     Dates: start: 20080704, end: 20080705
  9. AZACTAM [Concomitant]
     Dosage: 1600MG PER DAY
     Dates: start: 20080704, end: 20080710

REACTIONS (2)
  - VENOOCCLUSIVE LIVER DISEASE [None]
  - THROMBOTIC MICROANGIOPATHY [None]
